FAERS Safety Report 9513826 (Version 1)
Quarter: 2013Q3

REPORT INFORMATION
  Report Type: Spontaneous
  Country: US (occurrence: US)
  Receive Date: 20130910
  Receipt Date: 20130910
  Transmission Date: 20140515
  Serious: No
  Sender: FDA-Public Use
  Company Number: US-PFIZER INC-2013258533

PATIENT
  Age: 71 Year
  Sex: Female
  Weight: 45.35 kg

DRUGS (6)
  1. LIPITOR [Suspect]
     Indication: BLOOD CHOLESTEROL INCREASED
     Dosage: 80 MG, 1X/DAY
     Route: 048
     Dates: start: 2004, end: 2006
  2. ASPIRIN [Concomitant]
     Dosage: 81 MG, 1X/DAY
  3. METOPROLOL [Concomitant]
     Dosage: 25 MG, 2X/DAY
  4. ISOSORBIDE [Concomitant]
     Dosage: 60 MG, 1X/DAY
  5. KEPPRA [Concomitant]
     Dosage: 250 MG, 3X/DAY
  6. COUMADINE [Concomitant]
     Dosage: UNK

REACTIONS (3)
  - Hypokinesia [Unknown]
  - Gait disturbance [Unknown]
  - Muscular weakness [Unknown]
